FAERS Safety Report 6602923-1 (Version None)
Quarter: 2010Q1

REPORT INFORMATION
  Report Type: 
  Country: None (occurrence: None)
  Receive Date: 20100219
  Receipt Date: 20100217
  Transmission Date: 20100710
  Serious: Yes (Hospitalization)
  Sender: FDA-Public Use
  Company Number: 2010SP009632

PATIENT
  Age: 71 Year
  Sex: Male

DRUGS (5)
  1. BETAMATHASONE DIPROPIONATE [Suspect]
     Indication: DRUG USE FOR UNKNOWN INDICATION
     Dosage: TOP
     Route: 061
     Dates: start: 20100101, end: 20100201
  2. CORTANCYL [Concomitant]
  3. CACIT D3 [Concomitant]
  4. MOPRAL [Concomitant]
  5. ATARAX [Concomitant]

REACTIONS (2)
  - ECZEMA [None]
  - PRURITUS [None]
